FAERS Safety Report 13419403 (Version 3)
Quarter: 2025Q4

REPORT INFORMATION
  Report Type: Spontaneous
  Country: US (occurrence: US)
  Receive Date: 20170407
  Receipt Date: 20251209
  Transmission Date: 20260117
  Serious: No
  Sender: JOHNSON AND JOHNSON
  Company Number: US-JNJFOC-20170316145

PATIENT
  Age: 19 Year
  Sex: Male

DRUGS (2)
  1. RISPERDAL [Suspect]
     Active Substance: RISPERIDONE
     Indication: Acute psychosis
     Dosage: VARYING DOSES 1 MG, 2 MG
     Route: 048
     Dates: start: 20060517, end: 20060527
  2. RISPERDAL [Suspect]
     Active Substance: RISPERIDONE
     Indication: Psychotic disorder

REACTIONS (6)
  - Emotional disorder [Unknown]
  - Sedation [Unknown]
  - Nausea [Unknown]
  - Vomiting [Unknown]
  - Epistaxis [Unknown]
  - Gynaecomastia [Unknown]

NARRATIVE: CASE EVENT DATE: 20060501
